FAERS Safety Report 10029113 (Version 5)
Quarter: 2015Q2

REPORT INFORMATION
  Report Type: Spontaneous
  Country: US (occurrence: US)
  Receive Date: 20140321
  Receipt Date: 20150615
  Transmission Date: 20150821
  Serious: Yes (Hospitalization, Other)
  Sender: FDA-Public Use
  Company Number: US-SANOFI-AVENTIS-2012SA041974

PATIENT
  Age: 60 Year
  Sex: Male

DRUGS (9)
  1. LISINOPRIL. [Concomitant]
     Active Substance: LISINOPRIL
  2. ASPIRIN. [Concomitant]
     Active Substance: ASPIRIN
     Dates: start: 20091217, end: 20110602
  3. LASIX [Concomitant]
     Active Substance: FUROSEMIDE
  4. WARFARIN [Concomitant]
     Active Substance: WARFARIN
     Dates: start: 2009
  5. METOPROLOL [Concomitant]
     Active Substance: METOPROLOL
  6. CRESTOR [Concomitant]
     Active Substance: ROSUVASTATIN CALCIUM
  7. DIGOXIN. [Concomitant]
     Active Substance: DIGOXIN
  8. ADVAIR DISKUS [Concomitant]
     Active Substance: FLUTICASONE PROPIONATE\SALMETEROL XINAFOATE
  9. PLAVIX [Suspect]
     Active Substance: CLOPIDOGREL BISULFATE
     Indication: STENT PLACEMENT
     Route: 048
     Dates: start: 20091223, end: 20110602

REACTIONS (8)
  - Nausea [Unknown]
  - Subarachnoid haemorrhage [Unknown]
  - Multiple injuries [Unknown]
  - Eyelid ptosis [Unknown]
  - Vomiting [Unknown]
  - Miosis [Unknown]
  - Eye pain [Unknown]
  - Asthenia [Unknown]

NARRATIVE: CASE EVENT DATE: 20110602
